FAERS Safety Report 6218139-7 (Version None)
Quarter: 2009Q2

REPORT INFORMATION
  Report Type: 
  Country: None (occurrence: None)
  Receive Date: 20090608
  Receipt Date: 20090528
  Transmission Date: 20091009
  Serious: Yes (Other)
  Sender: FDA-Public Use
  Company Number: PHHY2009DE20843

PATIENT
  Sex: Male
  Weight: 134 kg

DRUGS (9)
  1. ALISKIREN ALI+ [Suspect]
     Indication: HYPERTENSION
     Dosage: 150 MG, UNK
     Dates: start: 20081113, end: 20081201
  2. ZANERIL [Concomitant]
     Indication: HYPERTENSION
     Dosage: 1 DF, QD
     Dates: start: 20081113
  3. BESOBETA COMP [Concomitant]
     Indication: HYPERTENSION
     Dosage: 0.5 DF
     Dates: start: 20081113
  4. DOXAGAMMA [Concomitant]
     Dosage: 1 DF, BID
  5. CITALOPRAM HYDROBROMIDE [Concomitant]
     Dosage: 1 DF, BID
  6. METFORMIN HYDROCHLORIDE [Concomitant]
     Indication: DIABETES MELLITUS
     Dosage: 1000 MG
  7. GLUCOBAY [Concomitant]
     Dosage: 1 DF, BID
  8. DURAFENAT [Concomitant]
     Dosage: 1 DF, QD
  9. ASPIRIN [Concomitant]
     Dosage: 1 DF, QD

REACTIONS (2)
  - HYPERTENSION [None]
  - TACHYCARDIA [None]
